FAERS Safety Report 13497756 (Version 3)
Quarter: 2018Q2

REPORT INFORMATION
  Report Type: Spontaneous
  Country: FR (occurrence: FR)
  Receive Date: 20170428
  Receipt Date: 20180625
  Transmission Date: 20180711
  Serious: Yes (Hospitalization, Other)
  Sender: FDA-Public Use
  Company Number: FR-PFIZER INC-2017180076

PATIENT
  Age: 90 Year
  Sex: Female
  Weight: 43 kg

DRUGS (4)
  1. ORBENINE [Suspect]
     Active Substance: CLOXACILLIN SODIUM
     Indication: WOUND
     Dosage: UNK
     Route: 048
     Dates: start: 20170215, end: 20170223
  2. AMOXICILLIN. [Suspect]
     Active Substance: AMOXICILLIN
     Dosage: UNK
     Route: 048
     Dates: start: 201702, end: 201703
  3. PYOSTACINE [Suspect]
     Active Substance: PRISTINAMYCIN
     Dosage: UNK
     Route: 048
     Dates: start: 201702, end: 201703
  4. TRIFLUCAN [Suspect]
     Active Substance: FLUCONAZOLE
     Dosage: UNK
     Route: 048
     Dates: start: 201702, end: 201703

REACTIONS (4)
  - Rash papular [Recovered/Resolved]
  - Therapeutic product cross-reactivity [Recovered/Resolved]
  - Renal failure [Unknown]
  - Generalised erythema [Recovered/Resolved]

NARRATIVE: CASE EVENT DATE: 20170223
